FAERS Safety Report 8587737-8 (Version None)
Quarter: 2012Q3

REPORT INFORMATION
  Report Type: 
  Country: None (occurrence: None)
  Receive Date: 20120813
  Receipt Date: 20120730
  Transmission Date: 20120928
  Serious: Yes (Other)
  Sender: FDA-Public Use
  Company Number: US-AMGEN-USASP2012049953

PATIENT
  Age: 84 Year
  Sex: Female
  Weight: 46.259 kg

DRUGS (3)
  1. ARANESP [Suspect]
     Indication: ANAEMIA
     Dosage: 300 MUG, Q2WK
     Route: 058
     Dates: start: 20120202
  2. REVLIMID [Suspect]
     Indication: MYELODYSPLASTIC SYNDROME
     Dosage: 5 MG, QD
     Route: 048
     Dates: start: 20120411
  3. VIDAZA [Concomitant]

REACTIONS (3)
  - FATIGUE [None]
  - DIARRHOEA [None]
  - WEIGHT DECREASED [None]
